FAERS Safety Report 6216272-7 (Version None)
Quarter: 2009Q2

REPORT INFORMATION
  Report Type: 
  Country: None (occurrence: None)
  Receive Date: 20090605
  Receipt Date: 20090602
  Transmission Date: 20091009
  Serious: Yes (Hospitalization)
  Sender: FDA-Public Use
  Company Number: B0576937A

PATIENT
  Sex: Male
  Weight: 55 kg

DRUGS (10)
  1. AUGMENTIN '125' [Suspect]
     Dosage: 1G THREE TIMES PER DAY
     Route: 048
     Dates: start: 20090201, end: 20090301
  2. TAHOR [Suspect]
     Indication: DRUG USE FOR UNKNOWN INDICATION
     Dosage: 80MG PER DAY
     Route: 048
     Dates: end: 20090323
  3. SOTALEX [Concomitant]
     Dosage: 40MG TWICE PER DAY
     Route: 048
  4. PREVISCAN [Concomitant]
     Route: 048
  5. INIPOMP [Concomitant]
     Route: 048
  6. ASPEGIC 1000 [Concomitant]
     Dosage: 100MG UNKNOWN
     Route: 065
  7. DISCOTRINE [Concomitant]
     Dosage: 10MG PER DAY
     Route: 065
  8. QUESTRAN [Concomitant]
     Dosage: 4G THREE TIMES PER DAY
     Route: 065
  9. FEROGRAD [Concomitant]
     Route: 065
  10. LEXOMIL [Concomitant]
     Dosage: .25UNIT UNKNOWN
     Route: 065

REACTIONS (8)
  - CHOLELITHIASIS [None]
  - CHROMATURIA [None]
  - FAECES DISCOLOURED [None]
  - HEPATITIS CHOLESTATIC [None]
  - JAUNDICE [None]
  - LIVER FUNCTION TEST ABNORMAL [None]
  - PAIN IN EXTREMITY [None]
  - RHABDOMYOLYSIS [None]
